FAERS Safety Report 5154890-8 (Version None)
Quarter: 2006Q4

REPORT INFORMATION
  Report Type: 
  Country: None (occurrence: None)
  Receive Date: 20061121
  Receipt Date: 20061114
  Transmission Date: 20070319
  Serious: Yes (Hospitalization)
  Sender: FDA-Public Use
  Company Number: US-JNJFOC-20060801845

PATIENT
  Sex: Female
  Weight: 75.3 kg

DRUGS (9)
  1. REMICADE [Suspect]
     Indication: RHEUMATOID ARTHRITIS
     Route: 042
  2. REMICADE [Suspect]
     Indication: CROHN'S DISEASE
     Route: 042
  3. ETODOLAC [Concomitant]
     Indication: ARTHRITIS
  4. LYRICA [Concomitant]
     Indication: PAIN
  5. ATENOLOL [Concomitant]
     Indication: HYPERTENSION
  6. BALACET [Concomitant]
     Indication: PAIN
     Dosage: 1-2 TABS EVERY 6 HOURS
  7. METHOTREXATE [Concomitant]
     Indication: RHEUMATOID ARTHRITIS
  8. PREDNISONE TAB [Concomitant]
     Indication: CROHN'S DISEASE
  9. PREDNISONE TAB [Concomitant]
     Indication: RHEUMATOID ARTHRITIS

REACTIONS (8)
  - ARTHRALGIA [None]
  - CROHN'S DISEASE [None]
  - DECREASED APPETITE [None]
  - DEHYDRATION [None]
  - DEPRESSION [None]
  - DIARRHOEA [None]
  - GENERAL PHYSICAL HEALTH DETERIORATION [None]
  - WEIGHT DECREASED [None]
